FAERS Safety Report 4269790-5 (Version None)
Quarter: 2004Q1

REPORT INFORMATION
  Report Type: 
  Country: None (occurrence: None)
  Receive Date: 20040113
  Receipt Date: 20031229
  Transmission Date: 20041129
  Serious: Yes (Death)
  Sender: FDA-Public Use
  Company Number: C2003-3172.01

PATIENT
  Age: 50 Year
  Sex: Female

DRUGS (4)
  1. CLOZAPINE [Suspect]
     Indication: SCHIZOAFFECTIVE DISORDER
     Dosage: 100MG, TID, ORAL
     Route: 048
     Dates: start: 20031201
  2. CLOZAPINE [Suspect]
     Indication: SCHIZOAFFECTIVE DISORDER
     Dosage: 25 MG TID, ORAL
     Route: 048
     Dates: end: 20031201
  3. LITHIUM CARBONATE [Concomitant]
  4. OLANZAPINE [Concomitant]

REACTIONS (2)
  - HEPATIC NEOPLASM MALIGNANT [None]
  - PANCREATIC CARCINOMA [None]
